FAERS Safety Report 6873493-8 (Version None)
Quarter: 2010Q3

REPORT INFORMATION
  Report Type: 
  Country: None (occurrence: None)
  Receive Date: 20100723
  Receipt Date: 20090113
  Transmission Date: 20110219
  Serious: No
  Sender: FDA-Public Use
  Company Number: US-PFIZER INC-2009157442

PATIENT
  Sex: Female
  Weight: 65.8 kg

DRUGS (4)
  1. CHANTIX [Suspect]
     Indication: SMOKING CESSATION THERAPY
     Dosage: 1 MG, 2X/DAY
     Route: 048
     Dates: start: 20090103
  2. XANAX [Concomitant]
     Dosage: 1 MG, 2X/DAY
  3. LEXAPRO [Concomitant]
     Dosage: 10 MG, 1X/DAY
  4. PHENTERMINE [Concomitant]
     Dosage: 37.5 MG, 1X/DAY

REACTIONS (3)
  - PHOTOSENSITIVITY ALLERGIC REACTION [None]
  - PRURITUS [None]
  - RASH [None]
